FAERS Safety Report 8299709-1 (Version None)
Quarter: 2012Q2

REPORT INFORMATION
  Report Type: 
  Country: None (occurrence: None)
  Receive Date: 20120419
  Receipt Date: 20120413
  Transmission Date: 20120825
  Serious: Yes (Hospitalization)
  Sender: FDA-Public Use
  Company Number: US-ABBOTT-12P-163-0918167-00

PATIENT
  Sex: Male
  Weight: 70.37 kg

DRUGS (19)
  1. SEROQUEL [Concomitant]
     Indication: SLEEP DISORDER
  2. PRISTIQ [Concomitant]
     Indication: DEPRESSION
  3. CELEBREX [Concomitant]
     Indication: ARTHRALGIA
  4. ENTOCORT EC [Concomitant]
     Indication: CROHN'S DISEASE
     Dates: end: 20120318
  5. MECLIZINE [Concomitant]
     Indication: VERTIGO
  6. PREDNISONE TAB [Suspect]
     Indication: CROHN'S DISEASE
  7. HYDROXYZINE PAMOATE [Concomitant]
     Indication: SLEEP DISORDER
  8. XANAX [Concomitant]
     Indication: ANXIETY
  9. DILAUDID [Concomitant]
     Indication: ARTHRALGIA
  10. HYTRIN [Concomitant]
     Indication: PRODUCT USED FOR UNKNOWN INDICATION
  11. REMERON [Concomitant]
     Indication: SLEEP DISORDER
  12. SYNTHROID [Concomitant]
     Indication: HYPOTHYROIDISM
  13. ENTOCORT EC [Concomitant]
     Dates: start: 20120319
  14. MORPHINE [Concomitant]
     Indication: ARTHRALGIA
  15. CARTIA XT [Concomitant]
     Indication: HYPERTENSION
     Dosage: 120 MG DAILY
     Dates: end: 20120301
  16. HUMIRA [Suspect]
     Indication: CROHN'S DISEASE
     Dosage: 160 MG LOADING DOSE
     Dates: start: 20120312, end: 20120312
  17. PRILOSEC [Concomitant]
     Indication: GASTROOESOPHAGEAL REFLUX DISEASE
  18. XANAX [Concomitant]
     Indication: PSYCHOTIC DISORDER
  19. CARTIA XT [Concomitant]
     Dosage: 180 MG DAILY
     Dates: start: 20120301

REACTIONS (8)
  - DIZZINESS [None]
  - HYPERTENSION [None]
  - DYSSTASIA [None]
  - HAEMOGLOBIN DECREASED [None]
  - SMALL INTESTINE ULCER [None]
  - TREMOR [None]
  - CROHN'S DISEASE [None]
  - GASTROINTESTINAL HAEMORRHAGE [None]
